FAERS Safety Report 17532793 (Version 3)
Quarter: 2021Q1

REPORT INFORMATION
  Report Type: Spontaneous
  Country: US (occurrence: US)
  Receive Date: 20200312
  Receipt Date: 20210211
  Transmission Date: 20210419
  Serious: No
  Sender: FDA-Public Use
  Company Number: US-PFIZER INC-2020107206

PATIENT
  Age: 60 Year
  Sex: Female

DRUGS (1)
  1. EUCRISA [Suspect]
     Active Substance: CRISABOROLE
     Indication: PRURITUS
     Dosage: UNK, 2X/DAY (APPLY BY TOPICAL ROUTE 2 TIMES EVERY DAY A THIN LAYER IN THE AFFECTED AREAS)
     Route: 061

REACTIONS (1)
  - Drug ineffective [Unknown]
